FAERS Safety Report 15852550 (Version 1)
Quarter: 2019Q1

REPORT INFORMATION
  Report Type: Report from Study
  Country: US (occurrence: US)
  Receive Date: 20190122
  Receipt Date: 20190122
  Transmission Date: 20190417
  Serious: Yes (Other)
  Sender: FDA-Public Use
  Company Number: US-SAKK-2019SA014816AA

PATIENT
  Age: 73 Year
  Sex: Female

DRUGS (1)
  1. INSULIN GLULISINE [Suspect]
     Active Substance: INSULIN GLULISINE
     Indication: DIABETES MELLITUS
     Dosage: 5 UNITS FOR BREAKFAST,10 UNITS FOR LUNCH ,10 UNITS FOR SUPPER AND 15 UNITS ON A SLIDING SCALE)
     Route: 058

REACTIONS (2)
  - Neoplasm malignant [Not Recovered/Not Resolved]
  - Intentional dose omission [Unknown]
